FAERS Safety Report 21850724 (Version 1)
Quarter: 2023Q1

REPORT INFORMATION
  Report Type: Spontaneous
  Country: ES (occurrence: ES)
  Receive Date: 20230111
  Receipt Date: 20230111
  Transmission Date: 20230417
  Serious: Yes (Hospitalization)
  Sender: FDA-Public Use
  Company Number: ES-ANIPHARMA-2023-ES-000005

PATIENT
  Age: 75 Year
  Sex: Male

DRUGS (8)
  1. CANDESARTAN CILEXETIL [Suspect]
     Active Substance: CANDESARTAN CILEXETIL
     Indication: Hypertension
     Dosage: 16.0 MG C/24 H
     Route: 048
     Dates: start: 20210210, end: 20220712
  2. NITROGLYCERIN [Suspect]
     Active Substance: NITROGLYCERIN
     Dosage: TRANSDERMAL PATCHES, 30 PATCHES
     Route: 065
     Dates: start: 20220315, end: 20220712
  3. FUROSEMIDE [Suspect]
     Active Substance: FUROSEMIDE
     Dosage: 40.0 MG C/24 H
     Route: 048
     Dates: start: 20220314, end: 20220712
  4. AMLODIPINE [Suspect]
     Active Substance: AMLODIPINE BESYLATE
     Dosage: 5.0 MG C/24 H
     Route: 048
     Dates: start: 20210209, end: 20220712
  5. METFORMIN [Concomitant]
     Active Substance: METFORMIN HYDROCHLORIDE
     Dosage: 850.0 MG C/24 H/PELICIDE COATED TABLETS EFG , 50 TABLETS
     Route: 048
     Dates: start: 20210210
  6. SOLIFENACIN\TAMSULOSIN [Concomitant]
     Active Substance: SOLIFENACIN\TAMSULOSIN
     Dosage: 1.0 COMP C/24 H/6 MG/0.4 MG MODIFIED-RELEASE TABLETS
     Route: 048
     Dates: start: 20210210
  7. ALLOPURINOL [Concomitant]
     Active Substance: ALLOPURINOL
     Dosage: 300.0 MG DE/300 MG EFG PRICES , 30 TABLETS
     Route: 048
     Dates: start: 20210210
  8. CALCIUM CARBONATE\CHOLECALCIFEROL [Concomitant]
     Active Substance: CALCIUM CARBONATE\CHOLECALCIFEROL
     Dosage: 1.0 COMP DE/600 MG/2000 IU BUCODISPERSABLE TABLETS, 30 TABLETS
     Route: 048
     Dates: start: 20210601

REACTIONS (1)
  - Syncope [Recovered/Resolved]

NARRATIVE: CASE EVENT DATE: 20220711
